FAERS Safety Report 11700151 (Version 1)
Quarter: 2015Q4

REPORT INFORMATION
  Report Type: Spontaneous
  Country: IT (occurrence: IT)
  Receive Date: 20151105
  Receipt Date: 20151105
  Transmission Date: 20160304
  Serious: Yes (Hospitalization)
  Sender: FDA-Public Use
  Company Number: IT-ASTRAZENECA-2015SF06558

PATIENT
  Age: 15626 Day
  Sex: Male

DRUGS (2)
  1. SEROQUEL [Suspect]
     Active Substance: QUETIAPINE FUMARATE
     Route: 048
     Dates: start: 20151021, end: 20151021
  2. LENDORMIN [Suspect]
     Active Substance: BROTIZOLAM
     Route: 048
     Dates: start: 20151021, end: 20151021

REACTIONS (4)
  - Drug abuse [Unknown]
  - Antipsychotic drug level increased [Unknown]
  - Electrocardiogram QT prolonged [Unknown]
  - Sinus tachycardia [Unknown]

NARRATIVE: CASE EVENT DATE: 20151021
